FAERS Safety Report 22696708 (Version 10)
Quarter: 2024Q1

REPORT INFORMATION
  Report Type: Spontaneous
  Country: US (occurrence: US)
  Receive Date: 20230712
  Receipt Date: 20240311
  Transmission Date: 20240410
  Serious: Yes (Other)
  Sender: FDA-Public Use
  Company Number: US-PFIZER INC-PV202200092973

PATIENT
  Age: 77 Year
  Sex: Female
  Weight: 90.72 kg

DRUGS (3)
  1. PREMARIN [Suspect]
     Active Substance: ESTROGENS, CONJUGATED
     Indication: Urinary tract infection
     Dosage: UNK
     Dates: start: 2020
  2. PREMARIN [Suspect]
     Active Substance: ESTROGENS, CONJUGATED
     Dosage: UNK
     Route: 067
  3. PREMARIN [Suspect]
     Active Substance: ESTROGENS, CONJUGATED
     Dosage: TUESDAYS AND FRIDAYS
     Route: 067

REACTIONS (4)
  - Neoplasm malignant [Unknown]
  - Scar [Unknown]
  - Stress [Unknown]
  - Off label use [Unknown]
